FAERS Safety Report 5893357-6 (Version None)
Quarter: 2008Q3

REPORT INFORMATION
  Report Type: 
  Country: None (occurrence: None)
  Receive Date: 20080919
  Receipt Date: 20080903
  Transmission Date: 20090109
  Serious: Yes (Hospitalization, Other)
  Sender: FDA-Public Use
  Company Number: SPV1-2008-00290

PATIENT
  Age: 64 Year
  Sex: Female
  Weight: 60.5 kg

DRUGS (4)
  1. FOSRENOL [Suspect]
     Indication: HYPERPHOSPHATAEMIA
     Dosage: 1 DF, 1 X/DAY:QD, ORAL
     Route: 048
     Dates: start: 20071130, end: 20071218
  2. CALCIUM CARBONATE (CALCIUM CARBONATE) [Concomitant]
  3. D-CURE (COLECALCIFEROL) [Concomitant]
  4. TEMESTA	/00273201/ (LORAZEPAM) [Concomitant]

REACTIONS (18)
  - ACUTE HEPATIC FAILURE [None]
  - BLOOD BICARBONATE INCREASED [None]
  - BLOOD CREATININE INCREASED [None]
  - BLOOD SODIUM DECREASED [None]
  - BLOOD UREA INCREASED [None]
  - BODY TEMPERATURE DECREASED [None]
  - DEPRESSED LEVEL OF CONSCIOUSNESS [None]
  - DIALYSIS [None]
  - DYSARTHRIA [None]
  - FATIGUE [None]
  - HEART RATE INCREASED [None]
  - HEPATIC CIRRHOSIS [None]
  - HYPERGLYCAEMIA [None]
  - HYPOREFLEXIA [None]
  - MOVEMENT DISORDER [None]
  - PLATELET COUNT DECREASED [None]
  - SOMNOLENCE [None]
  - STUPOR [None]
